FAERS Safety Report 10239183 (Version 2)
Quarter: 2014Q2

REPORT INFORMATION
  Report Type: Spontaneous
  Country: CA (occurrence: CA)
  Receive Date: 20140616
  Receipt Date: 20140623
  Transmission Date: 20141212
  Serious: Yes (Death)
  Sender: FDA-Public Use
  Company Number: CA-US-EMD SERONO, INC.-7297777

PATIENT
  Sex: Male

DRUGS (1)
  1. SAIZEN [Suspect]
     Indication: GROWTH HORMONE DEFICIENCY
     Route: 058
     Dates: start: 20130726

REACTIONS (4)
  - Aspiration [Fatal]
  - Bronchopulmonary disease [Fatal]
  - Shock [Fatal]
  - Pneumonia [Fatal]
